FAERS Safety Report 14482448 (Version 1)
Quarter: 2018Q1

REPORT INFORMATION
  Report Type: Report from Study
  Country: US (occurrence: US)
  Receive Date: 20180202
  Receipt Date: 20180202
  Transmission Date: 20180509
  Serious: No
  Sender: FDA-Public Use
  Company Number: PHEH2018US003649

PATIENT
  Sex: Female

DRUGS (1)
  1. GILENYA [Suspect]
     Active Substance: FINGOLIMOD HYDROCHLORIDE
     Indication: MULTIPLE SCLEROSIS
     Dosage: 0.5 MG, QD
     Route: 048
     Dates: start: 20180109

REACTIONS (6)
  - Decreased interest [Unknown]
  - Depressed mood [Unknown]
  - Back pain [Unknown]
  - Insomnia [Unknown]
  - Depression [Unknown]
  - Feeling abnormal [Unknown]
